FAERS Safety Report 5055155-5 (Version None)
Quarter: 2006Q2

REPORT INFORMATION
  Report Type: 
  Country: None (occurrence: None)
  Receive Date: 20060616
  Receipt Date: 20060324
  Transmission Date: 20061013
  Serious: No
  Sender: FDA-Public Use
  Company Number: 223468

PATIENT
  Age: 48 Year
  Sex: Female

DRUGS (3)
  1. AVASTIN [Suspect]
     Indication: COLORECTAL CANCER
     Dates: start: 20060101
  2. CHEMOTHERAPY NOS (ANTINEOPLASTIC AGENT NOS) [Concomitant]
  3. UNSPECIFIED CONCOMITANT DRUGS (GENERIC COMPONENT(S) NOT KNOWN) [Concomitant]

REACTIONS (5)
  - DISEASE PROGRESSION [None]
  - NAUSEA [None]
  - PLATELET COUNT DECREASED [None]
  - RED BLOOD CELL COUNT DECREASED [None]
  - WHITE BLOOD CELL COUNT DECREASED [None]
